FAERS Safety Report 8968605 (Version 3)
Quarter: 2013Q1

REPORT INFORMATION
  Report Type: Spontaneous
  Country: US (occurrence: US)
  Receive Date: 20121218
  Receipt Date: 20130313
  Transmission Date: 20140127
  Serious: No
  Sender: FDA-Public Use
  Company Number: US-BIOGENIDEC-2012BI060220

PATIENT
  Age: 63 None
  Sex: Male

DRUGS (7)
  1. TYSABRI [Suspect]
     Indication: MULTIPLE SCLEROSIS
     Route: 042
     Dates: start: 20041222, end: 20050201
  2. TYSABRI [Suspect]
     Indication: MULTIPLE SCLEROSIS
     Route: 042
     Dates: start: 20061215, end: 20071012
  3. TYSABRI [Suspect]
     Indication: MULTIPLE SCLEROSIS
     Route: 042
     Dates: start: 20081212, end: 20101015
  4. TYSABRI [Suspect]
     Indication: MULTIPLE SCLEROSIS
     Route: 042
     Dates: start: 20120316
  5. AVONEX [Concomitant]
     Indication: MULTIPLE SCLEROSIS
     Route: 030
  6. AVONEX [Concomitant]
     Indication: MULTIPLE SCLEROSIS
     Route: 030
     Dates: start: 19961215
  7. AVONEX [Concomitant]
     Indication: MULTIPLE SCLEROSIS
     Route: 030
     Dates: start: 20050228

REACTIONS (17)
  - Coagulation time prolonged [Recovered/Resolved]
  - Prostatic disorder [Unknown]
  - Pain in extremity [Unknown]
  - Hearing impaired [Unknown]
  - Angina pectoris [Recovered/Resolved]
  - Night blindness [Not Recovered/Not Resolved]
  - Bursitis [Recovered/Resolved]
  - Abasia [Not Recovered/Not Resolved]
  - Balance disorder [Not Recovered/Not Resolved]
  - Tooth extraction [Recovered/Resolved]
  - Dermatitis contact [Not Recovered/Not Resolved]
  - Vasoconstriction [Recovered/Resolved]
  - Cough [Recovered/Resolved]
  - Infection [Recovered/Resolved]
  - Musculoskeletal chest pain [Unknown]
  - Nasopharyngitis [Recovered/Resolved]
  - Hypotension [Unknown]
